FAERS Safety Report 19088839 (Version 3)
Quarter: 2021Q2

REPORT INFORMATION
  Report Type: Spontaneous
  Country: US (occurrence: US)
  Receive Date: 20210403
  Receipt Date: 20210629
  Transmission Date: 20210717
  Serious: No
  Sender: FDA-Public Use
  Company Number: US-ORGANON-O2103USA002238

PATIENT
  Age: 19 Year
  Sex: Female
  Weight: 49.89 kg

DRUGS (1)
  1. NEXPLANON [Suspect]
     Active Substance: ETONOGESTREL
     Dosage: 1 IMPLANT(68 MILLIGRAM) IN LEFT ARM, ONCE
     Route: 059
     Dates: start: 20181129, end: 20210316

REACTIONS (3)
  - Implant site erythema [Unknown]
  - Device kink [Recovered/Resolved]
  - Device expulsion [Recovered/Resolved]

NARRATIVE: CASE EVENT DATE: 20210301
